FAERS Safety Report 21680772 (Version 3)
Quarter: 2023Q1

REPORT INFORMATION
  Report Type: Spontaneous
  Country: IT (occurrence: IT)
  Receive Date: 20221205
  Receipt Date: 20230126
  Transmission Date: 20230418
  Serious: Yes (Other)
  Sender: FDA-Public Use
  Company Number: IT-AUROBINDO-AUR-APL-2022-051228

PATIENT
  Age: 54 Day
  Sex: Male
  Weight: 3.8 kg

DRUGS (4)
  1. AMIODARONE [Interacting]
     Active Substance: AMIODARONE
     Indication: Supraventricular tachycardia
     Dosage: UNK
     Route: 065
  2. LANOXIN [Interacting]
     Active Substance: DIGOXIN
     Indication: Supraventricular tachycardia
     Dosage: 5 MICROGRAM/KILOGRAM, ONCE A DAY
     Route: 048
  3. LANOXIN [Interacting]
     Active Substance: DIGOXIN
     Dosage: 500 MICROGRAM
     Route: 048
  4. PROPRANOLOL [Interacting]
     Active Substance: PROPRANOLOL HYDROCHLORIDE
     Indication: Supraventricular tachycardia
     Dosage: UNK
     Route: 065

REACTIONS (7)
  - Bradycardia [Unknown]
  - Hyperkalaemia [Unknown]
  - Hypermagnesaemia [Unknown]
  - Toxicity to various agents [Unknown]
  - Incorrect dose administered [Unknown]
  - Overdose [Unknown]
  - Drug interaction [Unknown]
